FAERS Safety Report 7343181-2 (Version None)
Quarter: 2011Q1

REPORT INFORMATION
  Report Type: 
  Country: None (occurrence: None)
  Receive Date: 20110310
  Receipt Date: 20110228
  Transmission Date: 20110831
  Serious: Yes (Hospitalization)
  Sender: FDA-Public Use
  Company Number: PHHY2010JP54760

PATIENT
  Age: 35 Year
  Sex: Female

DRUGS (3)
  1. STEROIDS NOS [Concomitant]
     Indication: COLITIS ULCERATIVE
  2. SANDIMMUNE [Suspect]
     Indication: COLITIS ULCERATIVE
     Dosage: 120 MG, UNK
     Dates: start: 20090120
  3. SANDIMMUNE [Suspect]
     Dosage: 120 MG, UNK
     Route: 042

REACTIONS (10)
  - CEREBRAL INFARCTION [None]
  - CEREBROVASCULAR SPASM [None]
  - HYPOAESTHESIA [None]
  - CEREBROVASCULAR STENOSIS [None]
  - COLITIS ULCERATIVE [None]
  - BEDRIDDEN [None]
  - MONOPLEGIA [None]
  - HYPERREFLEXIA [None]
  - CEREBRAL ARTERY STENOSIS [None]
  - VASCULITIS CEREBRAL [None]
